FAERS Safety Report 5042973-2 (Version None)
Quarter: 2006Q2

REPORT INFORMATION
  Report Type: 
  Country: None (occurrence: None)
  Receive Date: 20060627
  Receipt Date: 20060616
  Transmission Date: 20061013
  Serious: Yes (Other)
  Sender: FDA-Public Use
  Company Number: 2006070662

PATIENT
  Age: 67 Year
  Sex: Female
  Weight: 69.8539 kg

DRUGS (4)
  1. LIPITOR [Suspect]
     Dosage: 20 MG (20 MG, 1 IN 1 D), ORAL
     Route: 048
  2. ASPIRIN [Concomitant]
  3. IRBESARTAN [Concomitant]
  4. METFORMIN [Concomitant]

REACTIONS (6)
  - CONTUSION [None]
  - FALL [None]
  - HAEMATOMA [None]
  - HAEMORRHAGIC CYST [None]
  - INJURY [None]
  - SWELLING [None]
